FAERS Safety Report 5627132-4 (Version None)
Quarter: 2008Q1

REPORT INFORMATION
  Report Type: 
  Country: None (occurrence: None)
  Receive Date: 20080212
  Receipt Date: 20080212
  Transmission Date: 20080703
  Serious: No
  Sender: FDA-Public Use
  Company Number: None

PATIENT
  Sex: Male
  Weight: 74.8435 kg

DRUGS (1)
  1. VARENECLINE 1MG ONE PO BID [Suspect]
     Indication: SMOKING CESSATION THERAPY
     Dates: start: 20071210, end: 20080131

REACTIONS (2)
  - PAIN [None]
  - RASH MACULAR [None]
